FAERS Safety Report 6603280-7 (Version None)
Quarter: 2010Q1

REPORT INFORMATION
  Report Type: 
  Country: None (occurrence: None)
  Receive Date: 20100218
  Receipt Date: 20100208
  Transmission Date: 20100710
  Serious: Yes (Hospitalization)
  Sender: FDA-Public Use
  Company Number: 006669

PATIENT
  Age: 44 Year
  Sex: Female
  Weight: 72 kg

DRUGS (5)
  1. KEPPRA [Suspect]
     Indication: EPILEPSY
     Dosage: 1500 MG QD ORAL
     Route: 048
     Dates: start: 20091115, end: 20091224
  2. ENALAPRIL MALEATE [Concomitant]
  3. OBSIDAN /00030002/ [Concomitant]
  4. FUROSEMID /00032601/ [Concomitant]
  5. MIRTAZAPINE [Concomitant]

REACTIONS (3)
  - NAUSEA [None]
  - TRANSAMINASES INCREASED [None]
  - VOMITING [None]
